FAERS Safety Report 11874482 (Version 1)
Quarter: 2015Q4

REPORT INFORMATION
  Report Type: Spontaneous
  Country: US (occurrence: US)
  Receive Date: 20151229
  Receipt Date: 20151229
  Transmission Date: 20160305
  Serious: Yes (Other)
  Sender: FDA-Public Use
  Company Number: PHEH2015US008123

PATIENT

DRUGS (3)
  1. INSULIN [Concomitant]
     Active Substance: INSULIN NOS
     Indication: DIABETES MELLITUS
     Dosage: UNK
     Route: 064
  2. KEPPRA [Suspect]
     Active Substance: LEVETIRACETAM
     Indication: EPILEPSY
     Dosage: MATERNAL DOSE: 300 MG, UNK
     Route: 064
  3. TEGRETOL [Suspect]
     Active Substance: CARBAMAZEPINE
     Indication: EPILEPSY
     Dosage: MATERNAL DOSE: 600 MG, UNK
     Route: 064

REACTIONS (4)
  - Congenital genital malformation [Unknown]
  - Anorectal agenesis [Unknown]
  - Foetal exposure during pregnancy [Unknown]
  - Renal aplasia [Unknown]
